FAERS Safety Report 23084942 (Version 2)
Quarter: 2024Q3

REPORT INFORMATION
  Report Type: Report from Study
  Country: US (occurrence: US)
  Receive Date: 20231019
  Receipt Date: 20240724
  Transmission Date: 20241017
  Serious: Yes (Hospitalization, Other)
  Sender: SANDOZ
  Company Number: US-002147023-NVSC2021US184167

PATIENT
  Age: 2 Year
  Sex: Female
  Weight: 19.955 kg

DRUGS (21)
  1. TREPROSTINIL [Suspect]
     Active Substance: TREPROSTINIL
     Dosage: 79 NG/KG/MIN
     Route: 065
  2. TREPROSTINIL [Suspect]
     Active Substance: TREPROSTINIL
     Dosage: 15 NG/KG/MIN, CONT (1 MG/ML)
     Route: 058
     Dates: start: 20210816
  3. TREPROSTINIL [Suspect]
     Active Substance: TREPROSTINIL
     Indication: Pulmonary arterial hypertension
     Dosage: 15 NG/KG/MIN, CONT (1 MG/ML)
     Route: 058
  4. TREPROSTINIL [Suspect]
     Active Substance: TREPROSTINIL
     Dosage: 21 NG/KG/MIN, CONT (1 MG/ML)
     Route: 058
  5. TREPROSTINIL [Suspect]
     Active Substance: TREPROSTINIL
     Indication: Pulmonary arterial hypertension
     Dosage: 15 NG/KG/MIN, CONT (1 MG/ML)
     Route: 042
  6. TREPROSTINIL [Suspect]
     Active Substance: TREPROSTINIL
     Dosage: 31 NG/KG/MIN, CONT (1 MG/ML)
     Route: 058
  7. TREPROSTINIL [Suspect]
     Active Substance: TREPROSTINIL
     Dosage: UNK
     Route: 042
     Dates: start: 20210520
  8. TREPROSTINIL [Suspect]
     Active Substance: TREPROSTINIL
     Dosage: UNK UNK, CONT
     Route: 058
     Dates: start: 202108
  9. TREPROSTINIL [Suspect]
     Active Substance: TREPROSTINIL
     Dosage: 52 NG/KG/MIN, CONT (CONCENTRATION-2.5 MG/ML)
     Route: 042
  10. TREPROSTINIL [Suspect]
     Active Substance: TREPROSTINIL
     Dosage: 54 NG/KG/MIN, CONT
     Route: 042
     Dates: start: 202104
  11. TREPROSTINIL [Suspect]
     Active Substance: TREPROSTINIL
     Dosage: 54 NG/KG/MIN, CONT (CONCENTRATION-2.5 MG/ML)
     Route: 042
  12. TREPROSTINIL [Suspect]
     Active Substance: TREPROSTINIL
     Dosage: 63 NG/KG/MIN, CONT
     Route: 058
     Dates: start: 20210816, end: 20220421
  13. TREPROSTINIL [Suspect]
     Active Substance: TREPROSTINIL
     Dosage: 17 NG/KG/MIN, CONT
     Route: 058
     Dates: start: 20210816
  14. TREPROSTINIL [Suspect]
     Active Substance: TREPROSTINIL
     Dosage: 79 NG/KG/MIN CONTINOUS
     Route: 065
     Dates: start: 20230913
  15. TREPROSTINIL [Suspect]
     Active Substance: TREPROSTINIL
     Dosage: 23 NG/KG/MIN, CONT (1 MG/ML)
     Route: 058
     Dates: start: 20210601
  16. TREPROSTINIL [Suspect]
     Active Substance: TREPROSTINIL
     Dosage: UNK
     Route: 042
     Dates: start: 20220310
  17. TREPROSTINIL [Suspect]
     Active Substance: TREPROSTINIL
     Dosage: UNK
     Route: 058
  18. TREPROSTINIL [Suspect]
     Active Substance: TREPROSTINIL
     Dosage: UNK
     Route: 065
  19. AMLODIPINE [Concomitant]
     Active Substance: AMLODIPINE BESYLATE
     Indication: Product used for unknown indication
     Route: 065
  20. REMODULIN [Concomitant]
     Active Substance: TREPROSTINIL
     Indication: Product used for unknown indication
     Dosage: UNK
     Route: 065
  21. XARELTO [Concomitant]
     Active Substance: RIVAROXABAN
     Indication: Product used for unknown indication
     Dosage: UNK
     Route: 065

REACTIONS (32)
  - Pulmonary hypertension [Not Recovered/Not Resolved]
  - Oxygen saturation decreased [Unknown]
  - Respiratory arrest [Recovered/Resolved]
  - Pulmonary hypertensive crisis [Unknown]
  - Cardiac arrest [Recovered/Resolved]
  - Pneumonia [Unknown]
  - Parainfluenzae virus infection [Unknown]
  - Infusion site erythema [Recovered/Resolved]
  - Infusion site rash [Recovered/Resolved]
  - Infusion site cellulitis [Recovered/Resolved]
  - Lower limb fracture [Recovered/Resolved]
  - Syncope [Unknown]
  - Pyrexia [Unknown]
  - Injection site vesicles [Recovering/Resolving]
  - Injection site discharge [Unknown]
  - Injection site pain [Unknown]
  - Skin disorder [Unknown]
  - Anaesthesia [Unknown]
  - Injection site erythema [Unknown]
  - Scab [Unknown]
  - Rhinovirus infection [Unknown]
  - Secretion discharge [Unknown]
  - Rhinorrhoea [Unknown]
  - Malaise [Unknown]
  - Dry skin [Unknown]
  - Injection site irritation [Unknown]
  - Infusion site infection [Unknown]
  - Vomiting [Recovered/Resolved]
  - Peripheral swelling [Unknown]
  - Fatigue [Unknown]
  - Drug ineffective [Unknown]
  - Product supply issue [Unknown]

NARRATIVE: CASE EVENT DATE: 20210520
